FAERS Safety Report 7794810-0 (Version None)
Quarter: 2011Q4

REPORT INFORMATION
  Report Type: 
  Country: None (occurrence: None)
  Receive Date: 20111004
  Receipt Date: 20110928
  Transmission Date: 20120403
  Serious: Yes (Other)
  Sender: FDA-Public Use
  Company Number: US-PFIZER INC-2011231523

PATIENT
  Sex: Female
  Weight: 86.2 kg

DRUGS (1)
  1. DEPO-PROVERA [Suspect]
     Indication: CONTRACEPTION
     Dosage: UNK
     Route: 030
     Dates: start: 20061201, end: 20070101

REACTIONS (10)
  - WEIGHT INCREASED [None]
  - NERVOUSNESS [None]
  - NAUSEA [None]
  - ALOPECIA [None]
  - SKIN REACTION [None]
  - SKIN HYPERPIGMENTATION [None]
  - HEADACHE [None]
  - DEPRESSION [None]
  - ECZEMA [None]
  - MALAISE [None]
